FAERS Safety Report 13023875 (Version 1)
Quarter: 2016Q4

REPORT INFORMATION
  Report Type: Spontaneous
  Country: US (occurrence: US)
  Receive Date: 20161213
  Receipt Date: 20161213
  Transmission Date: 20170207
  Serious: Yes (Other)
  Sender: FDA-Public Use
  Company Number: US-AMGEN-USASP2016172357

PATIENT
  Age: 77 Year
  Sex: Female

DRUGS (14)
  1. ELIQUIS [Concomitant]
     Active Substance: APIXABAN
     Indication: BLOOD DISORDER
  2. IRON [Concomitant]
     Active Substance: IRON
     Dosage: 2 (IRON PILLS) QD
  3. VITAMIN D [Concomitant]
     Active Substance: CHOLECALCIFEROL
  4. AMLODIPINE [Concomitant]
     Active Substance: AMLODIPINE BESYLATE
  5. NEXIUM [Concomitant]
     Active Substance: ESOMEPRAZOLE MAGNESIUM
  6. ALPRAZOLAM. [Concomitant]
     Active Substance: ALPRAZOLAM
  7. BUPROPION. [Concomitant]
     Active Substance: BUPROPION
  8. MELATONIN [Concomitant]
     Active Substance: MELATONIN
  9. ADVAIR HFA [Concomitant]
     Active Substance: FLUTICASONE PROPIONATE\SALMETEROL XINAFOATE
     Dosage: 2 (PUFFS) QD
  10. PROBIOTIC [Concomitant]
     Active Substance: PROBIOTICS NOS
  11. OXYBUTYNINE [Concomitant]
     Active Substance: OXYBUTYNIN CHLORIDE
     Dosage: 5 MG, UNK
  12. PROLIA [Suspect]
     Active Substance: DENOSUMAB
     Indication: OSTEOPOROSIS POSTMENOPAUSAL
     Dosage: UNK
     Route: 065
     Dates: start: 2015
  13. FLECAINIDE [Concomitant]
     Active Substance: FLECAINIDE
  14. ASPIRIN 81 [Concomitant]
     Active Substance: ASPIRIN
     Dosage: 81 MG, UNK

REACTIONS (5)
  - Gait disturbance [Unknown]
  - Arthritis [Unknown]
  - Blood calcium increased [Unknown]
  - Chronic kidney disease [Unknown]
  - General physical health deterioration [Unknown]
